FAERS Safety Report 14874048 (Version 3)
Quarter: 2019Q1

REPORT INFORMATION
  Report Type: Report from Study
  Country: DE (occurrence: DE)
  Receive Date: 20180510
  Receipt Date: 20190206
  Transmission Date: 20190417
  Serious: Yes (Hospitalization)
  Sender: FDA-Public Use
  Company Number: PHHY2018DE077085

PATIENT
  Sex: Male
  Weight: 105 kg

DRUGS (1)
  1. ENTRESTO [Suspect]
     Active Substance: SACUBITRIL\VALSARTAN
     Indication: CARDIAC FAILURE
     Dosage: 1 DF, BID (49 MG SACUBITRIL/51 MG VALSARTAN)
     Route: 048
     Dates: start: 20161129

REACTIONS (4)
  - Intervertebral disc degeneration [Unknown]
  - Chest pain [Recovering/Resolving]
  - Blood creatinine increased [Unknown]
  - Angina pectoris [Recovered/Resolved]

NARRATIVE: CASE EVENT DATE: 20170807
